FAERS Safety Report 8530377-7 (Version None)
Quarter: 2012Q3

REPORT INFORMATION
  Report Type: 
  Country: None (occurrence: None)
  Receive Date: 20120723
  Receipt Date: 20120713
  Transmission Date: 20120928
  Serious: Yes (Other)
  Sender: FDA-Public Use
  Company Number: NZ-ASTRAZENECA-2011SE22183

PATIENT
  Age: 36 Year
  Sex: Male
  Weight: 80 kg

DRUGS (2)
  1. BUPIVACAINE HCL [Suspect]
     Indication: LOCAL ANAESTHESIA
     Route: 053
  2. LIDOCAINE [Suspect]
     Indication: LOCAL ANAESTHESIA
     Route: 053

REACTIONS (7)
  - PARAESTHESIA ORAL [None]
  - ELECTROCARDIOGRAM ST SEGMENT DEPRESSION [None]
  - TACHYCARDIA [None]
  - DIPLOPIA [None]
  - DIZZINESS [None]
  - HYPERTENSION [None]
  - HEADACHE [None]
